FAERS Safety Report 8821742 (Version 1)
Quarter: 2012Q4

REPORT INFORMATION
  Report Type: 
  Country: US (occurrence: US)
  Receive Date: 20121002
  Receipt Date: 20121002
  Transmission Date: 20130627
  Serious: Yes (Hospitalization, Disabling, Other)
  Sender: FDA-Public Use
  Company Number: US-009507513-2011SP040391

PATIENT
  Age: 48 None
  Sex: Female
  Weight: 90.72 kg

DRUGS (2)
  1. NUVARING [Suspect]
     Indication: CONTRACEPTION
     Dates: start: 200812
  2. NUVARING [Suspect]
     Indication: MENSTRUATION IRREGULAR
     Dates: start: 2009

REACTIONS (14)
  - Pulmonary embolism [Unknown]
  - Infection [Unknown]
  - Restless legs syndrome [Unknown]
  - General physical condition abnormal [Unknown]
  - Migraine [Unknown]
  - Hysterectomy [Unknown]
  - Salpingectomy [Unknown]
  - Menometrorrhagia [Unknown]
  - Uterine leiomyoma [Unknown]
  - Cervicitis [Unknown]
  - Adenomyosis [Unknown]
  - Atelectasis [Unknown]
  - Pulmonary infarction [Unknown]
  - Pleural effusion [Recovered/Resolved]
